FAERS Safety Report 4739167-4 (Version None)
Quarter: 2005Q3

REPORT INFORMATION
  Report Type: 
  Country: None (occurrence: None)
  Receive Date: 20050810
  Receipt Date: 20050502
  Transmission Date: 20060218
  Serious: No
  Sender: FDA-Public Use
  Company Number: US-GLAXOSMITHKLINE-A0556915A

PATIENT
  Age: 23 Year
  Sex: Male

DRUGS (4)
  1. PAXIL CR [Suspect]
     Indication: DEPRESSION
     Dosage: 25MG PER DAY
     Route: 048
     Dates: start: 20030201, end: 20030430
  2. LORTAB [Concomitant]
  3. SOMA [Concomitant]
  4. BEXTRA [Concomitant]

REACTIONS (2)
  - AMPHETAMINES POSITIVE [None]
  - DRUG SCREEN POSITIVE [None]
